FAERS Safety Report 13822254 (Version 1)
Quarter: 2017Q3

REPORT INFORMATION
  Report Type: Spontaneous
  Country: US (occurrence: US)
  Receive Date: 20170801
  Receipt Date: 20170801
  Transmission Date: 20171127
  Serious: No
  Sender: FDA-Public Use
  Company Number: None

PATIENT
  Age: 66 Year
  Sex: Male
  Weight: 102.06 kg

DRUGS (15)
  1. ARIPIPRAZOLE 882 MG [Suspect]
     Active Substance: ARIPIPRAZOLE
     Indication: SCHIZOPHRENIA
     Dosage: ROUTE - INJECTION IN BUTTOCK
  2. METOPROLOL. [Concomitant]
     Active Substance: METOPROLOL
  3. ASA [Concomitant]
     Active Substance: ASPIRIN
  4. ZINC. [Concomitant]
     Active Substance: ZINC
  5. LORATADINE. [Concomitant]
     Active Substance: LORATADINE
  6. ATORVASTATIN [Concomitant]
     Active Substance: ATORVASTATIN
  7. MAGNESIUM [Concomitant]
     Active Substance: MAGNESIUM
  8. FLAX OIL [Concomitant]
  9. ASPIRIN. [Concomitant]
     Active Substance: ASPIRIN
  10. MULTIVITAMIN [Concomitant]
     Active Substance: VITAMINS
  11. TYLENOL WITH CODEINE [Concomitant]
     Active Substance: ACETAMINOPHEN\CODEINE PHOSPHATE
  12. VALPROIC ACID. [Concomitant]
     Active Substance: VALPROIC ACID
  13. MORPHINE SULFATE. [Concomitant]
     Active Substance: MORPHINE SULFATE
  14. NASAL SOLUTION [Concomitant]
  15. METFORMIN [Concomitant]
     Active Substance: METFORMIN HYDROCHLORIDE

REACTIONS (4)
  - Rash erythematous [None]
  - Drug intolerance [None]
  - Rash macular [None]
  - Allergy to metals [None]
